FAERS Safety Report 7668955 (Version 4)
Quarter: 2013Q1

REPORT INFORMATION
  Report Type: Report from Study
  Country: DE (occurrence: DE)
  Receive Date: 20101115
  Receipt Date: 20130321
  Transmission Date: 20140127
  Serious: Yes (Life-Threatening, Hospitalization, Other)
  Sender: FDA-Public Use
  Company Number: DE-BRISTOL-MYERS SQUIBB COMPANY-14923551

PATIENT
  Age: 66 Year
  Sex: Male
  Weight: 66 kg

DRUGS (3)
  1. CETUXIMAB [Suspect]
     Indication: HEAD AND NECK CANCER
     Dosage: CETUXIMAB 5MG/ML; RECENT INF 24DEC09 (5TH INF).
     Route: 042
     Dates: start: 20091126, end: 20091224
  2. CISPLATIN FOR INJ [Suspect]
     Indication: HEAD AND NECK CANCER
     Dosage: RECENT INF 18DEC09 (2ND INF).
     Route: 042
     Dates: start: 20091126, end: 20091218
  3. 5-FLUOROURACIL [Suspect]
     Indication: HEAD AND NECK CANCER
     Dosage: CONTINUOUS INFUSION FROM DAY 1 TO DAY 4 OF CYCLE; RECENT INF 21DEC09 (8TH INF).
     Route: 042
     Dates: start: 20091126, end: 20091221

REACTIONS (4)
  - Pneumonia [Recovered/Resolved]
  - Adrenal insufficiency [Recovered/Resolved]
  - Asthenia [Not Recovered/Not Resolved]
  - Hypoxia [Recovered/Resolved]
